FAERS Safety Report 5211645-3 (Version None)
Quarter: 2007Q1

REPORT INFORMATION
  Report Type: 
  Country: None (occurrence: None)
  Receive Date: 20070118
  Receipt Date: 20070108
  Transmission Date: 20070707
  Serious: Yes (Hospitalization)
  Sender: FDA-Public Use
  Company Number: FR-JNJFOC-20070103544

PATIENT
  Age: 101 Year
  Sex: Female

DRUGS (3)
  1. ACETAMINOPHEN AND TRAMADOL HCL [Suspect]
     Indication: BACK PAIN
     Route: 048
  2. PANOS [Suspect]
     Indication: BACK PAIN
     Route: 048
  3. OFLOXACIN [Concomitant]
     Indication: ESCHERICHIA INFECTION
     Route: 065

REACTIONS (8)
  - ABNORMAL BEHAVIOUR [None]
  - AGITATION [None]
  - ESCHERICHIA INFECTION [None]
  - HALLUCINATION, AUDITORY [None]
  - HALLUCINATION, VISUAL [None]
  - NAUSEA [None]
  - PERSECUTORY DELUSION [None]
  - URINARY TRACT INFECTION [None]
